FAERS Safety Report 9171960 (Version 2)
Quarter: 2013Q1

REPORT INFORMATION
  Report Type: Spontaneous
  Country: US (occurrence: US)
  Receive Date: 20130319
  Receipt Date: 20130326
  Transmission Date: 20140127
  Serious: Yes (Hospitalization)
  Sender: FDA-Public Use
  Company Number: US-BAYER-2013-033280

PATIENT
  Age: 48 Year
  Sex: Female
  Weight: 58.96 kg

DRUGS (4)
  1. YAZ [Suspect]
     Indication: MENOPAUSAL SYMPTOMS
     Dosage: UNK
     Dates: start: 200611, end: 20070401
  2. IMITREX [Concomitant]
     Dosage: PRN
     Dates: start: 2002
  3. ACYCLOVIR [ACICLOVIR] [Concomitant]
     Dosage: PRN
  4. MULTIVITAMIN [Concomitant]

REACTIONS (9)
  - Pulmonary embolism [None]
  - Off label use [None]
  - Injury [None]
  - Pain [None]
  - General physical health deterioration [None]
  - Anxiety [None]
  - Emotional distress [None]
  - Anhedonia [None]
  - Pain [None]
